FAERS Safety Report 9270989 (Version 2)
Quarter: 2013Q2

REPORT INFORMATION
  Report Type: Spontaneous
  Country: JP (occurrence: JP)
  Receive Date: 20130506
  Receipt Date: 20130530
  Transmission Date: 20140414
  Serious: Yes (Death, Hospitalization)
  Sender: FDA-Public Use
  Company Number: JP-CELGENEUS-087-21660-13043304

PATIENT
  Age: 73 Year
  Sex: Male
  Weight: 71 kg

DRUGS (7)
  1. ABRAXANE [Suspect]
     Indication: LUNG CANCER METASTATIC
     Dosage: 100 MILLIGRAM
     Route: 041
     Dates: start: 20130228, end: 20130405
  2. OXYGEN [Concomitant]
     Indication: RESPIRATORY DISTRESS
     Route: 065
  3. VESICARE [Concomitant]
     Indication: HYPERTONIC BLADDER
     Dosage: 5 MILLIGRAM
     Route: 048
     Dates: end: 20130407
  4. WARFARIN [Concomitant]
     Indication: OSTEOPOROSIS
     Dosage: .5 MICROGRAM
     Route: 048
     Dates: end: 20130407
  5. BONOTEO [Concomitant]
     Indication: OSTEOPOROSIS
     Dosage: 50 MILLIGRAM
     Route: 048
     Dates: end: 20130309
  6. CLARITIN REDITABS [Concomitant]
     Indication: SEASONAL ALLERGY
     Dosage: 10 MILLIGRAM
     Route: 048
     Dates: end: 20130407
  7. GOSHAJINKIGAN [Concomitant]
     Indication: HYPOAESTHESIA
     Dosage: 7.5 GRAM
     Route: 048
     Dates: start: 20130308, end: 20130328

REACTIONS (1)
  - Interstitial lung disease [Fatal]
